FAERS Safety Report 9229474 (Version 1)
Quarter: 2013Q2

REPORT INFORMATION
  Report Type: Spontaneous
  Country: US (occurrence: US)
  Receive Date: 20130412
  Receipt Date: 20130412
  Transmission Date: 20140414
  Serious: Yes (Other)
  Sender: FDA-Public Use
  Company Number: US-ASTELLAS-2013US002106

PATIENT
  Age: 65 Year
  Sex: Female

DRUGS (5)
  1. PROGRAF [Suspect]
     Indication: LUNG TRANSPLANT
     Dosage: 2 MG, BID
     Route: 048
     Dates: start: 20120206
  2. REQUIP [Suspect]
     Indication: SLEEP DISORDER
     Dosage: UNK
     Route: 065
  3. TRAMADOL [Suspect]
     Indication: SLEEP DISORDER
     Dosage: UNK
     Route: 065
  4. KLONOPIN [Suspect]
     Indication: SLEEP DISORDER
     Dosage: UNK
     Route: 065
  5. GABAPENTIN [Suspect]
     Indication: SLEEP DISORDER
     Dosage: UNK, AT NIGHT
     Route: 065

REACTIONS (2)
  - Off label use [Unknown]
  - Fatigue [Unknown]
